FAERS Safety Report 5049419-9 (Version None)
Quarter: 2006Q3

REPORT INFORMATION
  Report Type: 
  Country: None (occurrence: None)
  Receive Date: 20060712
  Receipt Date: 20060706
  Transmission Date: 20061208
  Serious: Yes (Life-Threatening)
  Sender: FDA-Public Use
  Company Number: 2006AP03103

PATIENT
  Age: 30277 Day
  Sex: Female
  Weight: 65 kg

DRUGS (12)
  1. PROPOFOL [Suspect]
     Route: 042
     Dates: start: 20060506
  2. METOPROLOL TARTRATE [Suspect]
     Dates: end: 20060508
  3. CEFTRIAXONE [Suspect]
     Route: 042
     Dates: start: 20060506, end: 20060509
  4. ENOXAPARIN SODIUM [Suspect]
     Route: 058
     Dates: start: 20060506, end: 20060508
  5. METRONIDAZOLE [Suspect]
     Route: 042
     Dates: start: 20060506, end: 20060509
  6. PARACETAMOL [Suspect]
     Dates: start: 20060506, end: 20060509
  7. TRAMADOL HCL [Suspect]
     Route: 042
     Dates: start: 20060507, end: 20060507
  8. ESOMEPRAZOLE MAGNESIUM TRIHYDRATE [Concomitant]
     Route: 042
  9. MAXOLON [Concomitant]
     Route: 042
     Dates: start: 20060506
  10. NILSTAT [Concomitant]
     Route: 055
     Dates: start: 20060506
  11. NORADRENALINE [Concomitant]
  12. MORPHINE SULFATE [Concomitant]

REACTIONS (1)
  - HEPATITIS ACUTE [None]
